FAERS Safety Report 4667501-2 (Version None)
Quarter: 2005Q2

REPORT INFORMATION
  Report Type: 
  Country: None (occurrence: None)
  Receive Date: 20050520
  Receipt Date: 20041104
  Transmission Date: 20051028
  Serious: Yes (Other)
  Sender: FDA-Public Use
  Company Number: PHEH2004US11974

PATIENT
  Age: 72 Year
  Sex: Male

DRUGS (8)
  1. DEXAMETHASONE [Concomitant]
     Dosage: 10 MG, WITH DOCETAXEL
     Dates: start: 20031001
  2. LUPRON [Concomitant]
     Indication: PROSTATE CANCER
     Dosage: 22.5 MG, Q12W
     Route: 030
     Dates: start: 19950101
  3. DOCETAXEL [Concomitant]
     Indication: PROSTATE CANCER
     Dosage: 30 MG/M2, QW3
     Route: 042
     Dates: start: 20031001
  4. ALLOPURINOL [Concomitant]
     Indication: HYPERURICAEMIA
     Dosage: 300 MG, QD
     Route: 048
     Dates: start: 19900101
  5. CELEXA [Concomitant]
     Indication: DEPRESSION
     Dosage: 20 MG, QD
     Route: 048
     Dates: start: 20020101
  6. MORPHINE [Concomitant]
     Indication: PAIN
     Dosage: 15 MG, Q8H
     Dates: start: 20031001
  7. OXYCODONE HCL [Concomitant]
     Indication: PAIN
     Dosage: 5 MG, PRN
     Dates: start: 20031001
  8. ZOMETA [Suspect]
     Indication: METASTASES TO BONE
     Dosage: 4 MG, Q4W
     Route: 042
     Dates: start: 20040801, end: 20041001

REACTIONS (7)
  - BONE DISORDER [None]
  - IMPAIRED HEALING [None]
  - NECROSIS [None]
  - OSTEONECROSIS [None]
  - TOOTH EXTRACTION [None]
  - WOUND DEBRIDEMENT [None]
  - WOUND TREATMENT [None]
